FAERS Safety Report 15979117 (Version 1)
Quarter: 2019Q1

REPORT INFORMATION
  Report Type: Spontaneous
  Country: US (occurrence: US)
  Receive Date: 20190215
  Receipt Date: 20190215
  Transmission Date: 20190418
  Serious: Yes (Other)
  Sender: FDA-Public Use
  Company Number: None

PATIENT
  Age: 59 Year
  Sex: Female
  Weight: 148.5 kg

DRUGS (1)
  1. SAVELLA [Suspect]
     Active Substance: MILNACIPRAN HYDROCHLORIDE
     Indication: FIBROMYALGIA
     Dosage: ?          QUANTITY:1 TABLET(S);OTHER FREQUENCY:2 IN AM, 1 IN PM;?
     Route: 048
     Dates: start: 20150601, end: 20181210

REACTIONS (5)
  - Photopsia [None]
  - Ophthalmological examination abnormal [None]
  - Visual impairment [None]
  - Myopia [None]
  - Vision blurred [None]

NARRATIVE: CASE EVENT DATE: 20180611
